FAERS Safety Report 4318442-1 (Version None)
Quarter: 2004Q1

REPORT INFORMATION
  Report Type: 
  Country: None (occurrence: None)
  Receive Date: 20040315
  Receipt Date: 20040302
  Transmission Date: 20041129
  Serious: Yes (Death, Life-Threatening, Hospitalization, Other)
  Sender: FDA-Public Use
  Company Number: 2004014014

PATIENT
  Age: 51 Year
  Sex: Female

DRUGS (1)
  1. VIAGRA [Suspect]
     Indication: PULMONARY HYPERTENSION

REACTIONS (5)
  - CARDIAC ARREST [None]
  - CARDIOGENIC SHOCK [None]
  - COMPLICATIONS OF TRANSPLANT SURGERY [None]
  - DISSEMINATED INTRAVASCULAR COAGULATION [None]
  - HEART AND LUNG TRANSPLANT [None]
